FAERS Safety Report 6046129-6 (Version None)
Quarter: 2009Q1

REPORT INFORMATION
  Report Type: 
  Country: None (occurrence: None)
  Receive Date: 20090121
  Receipt Date: 20090121
  Transmission Date: 20090719
  Serious: Yes (Hospitalization)
  Sender: FDA-Public Use
  Company Number: None

PATIENT
  Sex: Female
  Weight: 56 kg

DRUGS (2)
  1. CYCLOPHOSPHAMIDE [Suspect]
     Dosage: 9600 MG
  2. DOXORUBICIN HYDROCHLORIDE [Suspect]
     Dosage: 96 MG

REACTIONS (8)
  - BRONCHITIS [None]
  - CHEST PAIN [None]
  - DECREASED APPETITE [None]
  - HAEMOGLOBIN DECREASED [None]
  - HAEMOPTYSIS [None]
  - INFECTION [None]
  - LEUKAEMOID REACTION [None]
  - WHITE BLOOD CELL COUNT DECREASED [None]
